FAERS Safety Report 23158494 (Version 1)
Quarter: 2023Q4

REPORT INFORMATION
  Report Type: Other
  Country: None (occurrence: US)
  Receive Date: 20231108
  Receipt Date: 20231108
  Transmission Date: 20240109
  Serious: Yes (Other)
  Sender: FDA-Public Use
  Company Number: US-Eywa Pharma Inc.-2147972

PATIENT
  Age: 72 Year
  Sex: Male

DRUGS (3)
  1. PYRIDOSTIGMINE BROMIDE [Suspect]
     Active Substance: PYRIDOSTIGMINE BROMIDE
     Indication: Myasthenia gravis
     Route: 065
  2. KEYTRUDA [Concomitant]
     Active Substance: PEMBROLIZUMAB
     Route: 065
  3. Immunoglobulin [Concomitant]
     Route: 042

REACTIONS (2)
  - Bradycardia [Unknown]
  - Atrioventricular block first degree [Unknown]
